FAERS Safety Report 17310880 (Version 1)
Quarter: 2020Q1

REPORT INFORMATION
  Report Type: Spontaneous
  Country: US (occurrence: US)
  Receive Date: 20200123
  Receipt Date: 20200123
  Transmission Date: 20200409
  Serious: No
  Sender: FDA-Public Use
  Company Number: US-ROCHE-2303701

PATIENT
  Sex: Male
  Weight: 54.93 kg

DRUGS (3)
  1. ACETAMINOPHEN. [Concomitant]
     Active Substance: ACETAMINOPHEN
     Route: 048
     Dates: start: 20181029
  2. RITUXAN [Suspect]
     Active Substance: RITUXIMAB
     Indication: DIFFUSE LARGE B-CELL LYMPHOMA
     Dosage: ADMINISTER 700 MG IVPB ON
     Route: 042
     Dates: start: 20181031
  3. RITUXAN [Suspect]
     Active Substance: RITUXIMAB
     Dosage: ADMINISTER 700 MG IVPB ON
     Route: 042
     Dates: start: 20181031

REACTIONS (1)
  - Haemoglobin decreased [Unknown]
